FAERS Safety Report 4875054-9 (Version None)
Quarter: 2006Q1

REPORT INFORMATION
  Report Type: 
  Country: None (occurrence: None)
  Receive Date: 20060109
  Receipt Date: 20051229
  Transmission Date: 20060701
  Serious: Yes (Hospitalization)
  Sender: FDA-Public Use
  Company Number: DE-JNJFOC-20050607112

PATIENT
  Age: 52 Year
  Sex: Female

DRUGS (12)
  1. HALDOL [Suspect]
     Route: 048
  2. HALDOL [Suspect]
     Route: 048
  3. HALDOL [Suspect]
     Route: 048
  4. HALDOL [Suspect]
     Route: 048
  5. HALDOL [Suspect]
     Route: 048
  6. HALDOL [Suspect]
     Route: 048
  7. HALDOL [Suspect]
     Route: 048
  8. HALDOL [Suspect]
     Route: 048
  9. SOLIAN [Suspect]
     Route: 048
  10. MELPERON [Interacting]
     Route: 048
  11. MELPERON [Interacting]
     Route: 048
  12. MELPERON [Interacting]
     Route: 048

REACTIONS (2)
  - DRUG INTERACTION [None]
  - PLEUROTHOTONUS [None]
